FAERS Safety Report 23416283 (Version 1)
Quarter: 2024Q1

REPORT INFORMATION
  Report Type: Spontaneous
  Country: None (occurrence: US)
  Receive Date: 20240118
  Receipt Date: 20240118
  Transmission Date: 20240410
  Serious: No
  Sender: FDA-Public Use
  Company Number: US-Harrow Eye-2151442

PATIENT
  Age: 74 Year
  Sex: Female

DRUGS (1)
  1. IHEEZO [Suspect]
     Active Substance: CHLOROPROCAINE HYDROCHLORIDE
     Indication: Anaesthesia
     Route: 047
     Dates: start: 20231009, end: 20231009

REACTIONS (4)
  - Ocular surface disease [Recovered/Resolved]
  - Dellen [Unknown]
  - Corneal opacity [Unknown]
  - Vision blurred [Unknown]

NARRATIVE: CASE EVENT DATE: 20231009
